FAERS Safety Report 10812144 (Version 1)
Quarter: 2015Q1

REPORT INFORMATION
  Report Type: Spontaneous
  Country: US (occurrence: None)
  Receive Date: 20150212
  Receipt Date: 20150212
  Transmission Date: 20150721
  Serious: Yes (Life-Threatening, Disabling, Other)
  Sender: FDA-Public Use
  Company Number: None

PATIENT
  Age: 47 Year
  Sex: Male
  Weight: 80.74 kg

DRUGS (1)
  1. LEVAQUIN [Suspect]
     Active Substance: LEVOFLOXACIN
     Indication: INFECTION
     Dates: start: 20150203, end: 20150210

REACTIONS (7)
  - Burning sensation [None]
  - Inflammation [None]
  - Pain [None]
  - Erythema [None]
  - Tendon rupture [None]
  - Nervous system disorder [None]
  - Brain oedema [None]

NARRATIVE: CASE EVENT DATE: 20150211
